FAERS Safety Report 4309025-8 (Version None)
Quarter: 2004Q1

REPORT INFORMATION
  Report Type: 
  Country: None (occurrence: None)
  Receive Date: 20040301
  Receipt Date: 20030311
  Transmission Date: 20041129
  Serious: Yes (Other)
  Sender: FDA-Public Use
  Company Number: 03-03-0286

PATIENT
  Age: 62 Year
  Sex: Male
  Weight: 74.3899 kg

DRUGS (3)
  1. HYDROCHLOROTHIAZIDE TAB [Suspect]
     Indication: HYPERTENSION
     Dosage: 25-50MG ORAL
     Route: 048
     Dates: start: 19990107, end: 20010601
  2. TARKA [Suspect]
     Indication: HYPERTENSION
     Dosage: 240/4MG BID ORAL
     Route: 048
     Dates: start: 19981120, end: 20020415
  3. ISOPTIN TAB [Concomitant]

REACTIONS (1)
  - HYPOKALAEMIA [None]
